FAERS Safety Report 20323466 (Version 1)
Quarter: 2022Q1

REPORT INFORMATION
  Report Type: Spontaneous
  Country: US (occurrence: US)
  Receive Date: 20220111
  Receipt Date: 20220111
  Transmission Date: 20220424
  Serious: No
  Sender: FDA-Public Use
  Company Number: US-NOVOPROD-867562

PATIENT
  Age: 63 Year
  Sex: Male

DRUGS (3)
  1. RYBELSUS [Suspect]
     Active Substance: SEMAGLUTIDE
     Dosage: 7 MG PILL PLUS 1/2 OF ANOTHER 7 MG PILL
     Route: 048
     Dates: start: 2021
  2. RYBELSUS [Suspect]
     Active Substance: SEMAGLUTIDE
     Dosage: 7 MG, QD
     Route: 048
     Dates: start: 20211023, end: 2021
  3. RYBELSUS [Suspect]
     Active Substance: SEMAGLUTIDE
     Indication: Type 2 diabetes mellitus
     Dosage: 3 MG, QD
     Route: 048
     Dates: start: 20210924, end: 20211022

REACTIONS (6)
  - Weight increased [Not Recovered/Not Resolved]
  - Nausea [Recovering/Resolving]
  - Flatulence [Recovering/Resolving]
  - Eructation [Recovering/Resolving]
  - Abdominal distension [Recovering/Resolving]
  - Intentional product use issue [Unknown]

NARRATIVE: CASE EVENT DATE: 20210101
